FAERS Safety Report 20456792 (Version 1)
Quarter: 2022Q1

REPORT INFORMATION
  Report Type: Spontaneous
  Country: US (occurrence: None)
  Receive Date: 20220210
  Receipt Date: 20220210
  Transmission Date: 20220423
  Serious: Yes (Hospitalization)
  Sender: FDA-Public Use
  Company Number: None

PATIENT
  Age: 55 Year
  Sex: Male
  Weight: 103 kg

DRUGS (2)
  1. BARICITINIB [Suspect]
     Active Substance: BARICITINIB
     Indication: COVID-19 pneumonia
     Dosage: FREQUENCY : DAILY;?
     Dates: start: 20210913, end: 20210921
  2. Lovenox 40mg daily [Concomitant]
     Dates: start: 20210912, end: 20210921

REACTIONS (2)
  - Acute respiratory failure [None]
  - Deep vein thrombosis [None]

NARRATIVE: CASE EVENT DATE: 20210921
